FAERS Safety Report 4726373-8 (Version None)
Quarter: 2005Q3

REPORT INFORMATION
  Report Type: 
  Country: None (occurrence: None)
  Receive Date: 20050727
  Receipt Date: 20050720
  Transmission Date: 20060218
  Serious: Yes (Hospitalization)
  Sender: FDA-Public Use
  Company Number: C05-T-127

PATIENT
  Age: 55 Year
  Sex: Male
  Weight: 89.8122 kg

DRUGS (1)
  1. ATENOLOL [Suspect]
     Indication: HYPERTENSION
     Dosage: 25 MG QD PO
     Route: 048
     Dates: start: 20050519, end: 20050713

REACTIONS (1)
  - BLOOD PRESSURE INCREASED [None]
